FAERS Safety Report 22998605 (Version 2)
Quarter: 2024Q4

REPORT INFORMATION
  Report Type: Spontaneous
  Country: US (occurrence: US)
  Receive Date: 20230928
  Receipt Date: 20241004
  Transmission Date: 20250114
  Serious: No
  Sender: ENDO
  Company Number: ENDB23-03180

PATIENT
  Sex: Female

DRUGS (2)
  1. THEO-24 [Suspect]
     Active Substance: THEOPHYLLINE ANHYDROUS
     Indication: Asthma
     Dosage: 300 MG, DAILY
     Route: 065
  2. THEO-24 [Suspect]
     Active Substance: THEOPHYLLINE ANHYDROUS
     Dosage: UNK UNKNOWN, OD
     Route: 065

REACTIONS (3)
  - Drug ineffective [Unknown]
  - Product dose omission issue [Not Recovered/Not Resolved]
  - Product availability issue [Not Recovered/Not Resolved]
